FAERS Safety Report 23936339 (Version 2)
Quarter: 2024Q2

REPORT INFORMATION
  Report Type: Spontaneous
  Country: CZ (occurrence: CZ)
  Receive Date: 20240604
  Receipt Date: 20240628
  Transmission Date: 20240716
  Serious: Yes (Hospitalization)
  Sender: FDA-Public Use
  Company Number: CZ-002147023-NVSC2024CZ116517

PATIENT
  Sex: Male

DRUGS (1)
  1. KESIMPTA [Suspect]
     Active Substance: OFATUMUMAB
     Indication: Multiple sclerosis
     Dosage: UNK
     Route: 065
     Dates: start: 20240515

REACTIONS (9)
  - Vomiting [Recovering/Resolving]
  - Malaise [Unknown]
  - Loss of consciousness [Recovering/Resolving]
  - Pyrexia [Recovered/Resolved]
  - Headache [Unknown]
  - Fatigue [Recovered/Resolved]
  - Fall [Recovering/Resolving]
  - Hyperhidrosis [Recovering/Resolving]
  - Skin abrasion [Recovering/Resolving]

NARRATIVE: CASE EVENT DATE: 20240515
